FAERS Safety Report 5852387-0 (Version None)
Quarter: 2008Q3

REPORT INFORMATION
  Report Type: 
  Country: None (occurrence: None)
  Receive Date: 20080820
  Receipt Date: 20080820
  Transmission Date: 20090109
  Serious: Yes (Hospitalization)
  Sender: FDA-Public Use
  Company Number: None

PATIENT
  Age: 73 Year
  Sex: Female
  Weight: 101 kg

DRUGS (2)
  1. MORPHINE [Suspect]
     Indication: SPINAL COLUMN STENOSIS
     Dosage: 30 MG BID PO
     Route: 048
     Dates: start: 20080708, end: 20080710
  2. ACETAMINOPHEN AND HYDROCODONE BITARTRATE [Suspect]
     Indication: OSTEOARTHRITIS
     Dosage: 30 MG PRN PO
     Route: 048
     Dates: start: 20070904, end: 20080711

REACTIONS (8)
  - AGGRESSION [None]
  - CONFUSIONAL STATE [None]
  - INCORRECT DOSE ADMINISTERED [None]
  - MEMORY IMPAIRMENT [None]
  - MENTAL STATUS CHANGES [None]
  - RESPIRATORY DEPRESSION [None]
  - SEDATION [None]
  - SPEECH DISORDER [None]
